FAERS Safety Report 24000866 (Version 3)
Quarter: 2024Q3

REPORT INFORMATION
  Report Type: Report from Study
  Country: BR (occurrence: None)
  Receive Date: 20240621
  Receipt Date: 20240705
  Transmission Date: 20241017
  Serious: No
  Sender: ASTRAZENECA
  Company Number: 2024A101683

PATIENT
  Sex: Female

DRUGS (5)
  1. FASENRA [Suspect]
     Active Substance: BENRALIZUMAB
     Indication: Asthma
     Route: 058
     Dates: start: 20240618, end: 20240618
  2. SYMBICORT [Suspect]
     Active Substance: BUDESONIDE\FORMOTEROL FUMARATE DIHYDRATE
     Indication: Dyspnoea
     Dosage: 1 INHALATION 320/9 MCG
     Route: 055
  3. MPID : 4292547(1.01) : CLENIL HFA [Concomitant]
     Indication: Dyspnoea
     Dosage: 3 JETS
     Route: 055
  4. MPID : 4802810(1.01) : SPIRIVA [Concomitant]
     Dosage: 2 JETS
     Route: 055
  5. MPID : 2389246(1.01) : MONTELAIR [Concomitant]
     Indication: Dyspnoea
     Dosage: ONE TABLET ONCE
     Route: 048

REACTIONS (5)
  - Dysphonia [Recovering/Resolving]
  - Influenza [Recovering/Resolving]
  - Off label use [Not Recovered/Not Resolved]
  - Inappropriate schedule of product administration [Recovered/Resolved]
  - Hypersensitivity [Unknown]

NARRATIVE: CASE EVENT DATE: 20240411
